FAERS Safety Report 25623030 (Version 1)
Quarter: 2025Q3

REPORT INFORMATION
  Report Type: Spontaneous
  Country: US (occurrence: US)
  Receive Date: 20250730
  Receipt Date: 20250730
  Transmission Date: 20251021
  Serious: No
  Sender: GALPHARM INTERNATIONAL
  Company Number: US-PERRIGO-25US005850

PATIENT
  Age: 80 Year
  Sex: Female
  Weight: 79.365 kg

DRUGS (3)
  1. LORATADINE [Suspect]
     Active Substance: LORATADINE
     Indication: Rhinorrhoea
     Dosage: 10 MG, QD
     Route: 048
     Dates: start: 20250421
  2. LORATADINE [Suspect]
     Active Substance: LORATADINE
     Indication: Lacrimation increased
     Route: 048
     Dates: start: 20250505, end: 20250505
  3. LORATADINE [Suspect]
     Active Substance: LORATADINE
     Indication: Seasonal allergy

REACTIONS (3)
  - Nasal dryness [Not Recovered/Not Resolved]
  - Wrong technique in product usage process [Unknown]
  - Inappropriate schedule of product administration [Unknown]

NARRATIVE: CASE EVENT DATE: 20250505
